FAERS Safety Report 19060968 (Version 2)
Quarter: 2021Q3

REPORT INFORMATION
  Report Type: Spontaneous
  Country: US (occurrence: US)
  Receive Date: 20210325
  Receipt Date: 20210928
  Transmission Date: 20211014
  Serious: Yes (Hospitalization, Other)
  Sender: FDA-Public Use
  Company Number: US-GILEAD-2021-0522292

PATIENT
  Age: 53 Year
  Sex: Male
  Weight: 70.3 kg

DRUGS (52)
  1. ISENTRESS [Concomitant]
     Active Substance: RALTEGRAVIR POTASSIUM
  2. NORVIR [Concomitant]
     Active Substance: RITONAVIR
  3. CLOPIDOGREL [Concomitant]
     Active Substance: CLOPIDOGREL BISULFATE
  4. SAVELLA [Concomitant]
     Active Substance: MILNACIPRAN HYDROCHLORIDE
  5. SERTRALINE [Concomitant]
     Active Substance: SERTRALINE HYDROCHLORIDE
  6. ATRIPLA [Suspect]
     Active Substance: EFAVIRENZ\EMTRICITABINE\TENOFOVIR DISOPROXIL FUMARATE
     Dosage: UNK
     Route: 048
     Dates: start: 201102, end: 201302
  7. CIALIS [Concomitant]
     Active Substance: TADALAFIL
  8. CYTOMEL [Concomitant]
     Active Substance: LIOTHYRONINE SODIUM
  9. DOXYCYCLINE HYCLATE. [Concomitant]
     Active Substance: DOXYCYCLINE HYCLATE
  10. FLUTICASONE. [Concomitant]
     Active Substance: FLUTICASONE
  11. COMPLERA [Suspect]
     Active Substance: EMTRICITABINE\RILPIVIRINE HYDROCHLORIDE\TENOFOVIR DISOPROXIL FUMARATE
     Indication: HIV INFECTION
     Dosage: UNK
     Route: 048
     Dates: start: 2011
  12. ASPIRIN [ACETYLSALICYLIC ACID] [Concomitant]
     Active Substance: ASPIRIN
  13. EDURANT [Concomitant]
     Active Substance: RILPIVIRINE HYDROCHLORIDE
  14. INTELENCE [Concomitant]
     Active Substance: ETRAVIRINE
  15. DOVATO [Concomitant]
     Active Substance: DOLUTEGRAVIR SODIUM\LAMIVUDINE
  16. METOPROLOL. [Concomitant]
     Active Substance: METOPROLOL
  17. MIRTAZAPINE. [Concomitant]
     Active Substance: MIRTAZAPINE
  18. REXULTI [Concomitant]
     Active Substance: BREXPIPRAZOLE
  19. ROSUVASTATIN. [Concomitant]
     Active Substance: ROSUVASTATIN
  20. TAMSULOSIN [Concomitant]
     Active Substance: TAMSULOSIN
  21. COMPLERA [Suspect]
     Active Substance: EMTRICITABINE\RILPIVIRINE HYDROCHLORIDE\TENOFOVIR DISOPROXIL FUMARATE
     Dosage: UNK
     Route: 048
     Dates: start: 20130227, end: 20140429
  22. PREZISTA [Concomitant]
     Active Substance: DARUNAVIR ETHANOLATE
  23. REYATAZ [Concomitant]
     Active Substance: ATAZANAVIR SULFATE
  24. ATORVASTATIN [Concomitant]
     Active Substance: ATORVASTATIN
  25. PROMETHAZINE [Concomitant]
     Active Substance: PROMETHAZINE HYDROCHLORIDE
  26. DULOXETINE. [Concomitant]
     Active Substance: DULOXETINE
  27. TIZANIDINE. [Concomitant]
     Active Substance: TIZANIDINE
  28. TRUVADA [Suspect]
     Active Substance: EMTRICITABINE\TENOFOVIR DISOPROXIL FUMARATE
     Indication: HIV INFECTION
     Dosage: UNK
     Route: 048
     Dates: start: 2011
  29. TIVICAY [Concomitant]
     Active Substance: DOLUTEGRAVIR SODIUM
  30. AFLURIA NOS [Concomitant]
     Active Substance: INFLUENZA VIRUS VACCINE TRIVALENT TYPE A+B AFLURIA
  31. BACLOFEN. [Concomitant]
     Active Substance: BACLOFEN
  32. CILOSTAZOL. [Concomitant]
     Active Substance: CILOSTAZOL
  33. CIPROFLOXACIN. [Concomitant]
     Active Substance: CIPROFLOXACIN
  34. FETZIMA [Concomitant]
     Active Substance: LEVOMILNACIPRAN HYDROCHLORIDE
  35. METHYLPHENIDATE. [Concomitant]
     Active Substance: METHYLPHENIDATE
  36. PRAVASTATIN. [Concomitant]
     Active Substance: PRAVASTATIN
  37. TRUVADA [Suspect]
     Active Substance: EMTRICITABINE\TENOFOVIR DISOPROXIL FUMARATE
     Dosage: UNK
     Route: 048
     Dates: start: 200908, end: 201102
  38. ATRIPLA [Suspect]
     Active Substance: EFAVIRENZ\EMTRICITABINE\TENOFOVIR DISOPROXIL FUMARATE
     Indication: HIV INFECTION
     Dosage: UNK
     Route: 048
     Dates: start: 2011
  39. OXYCODONE [Concomitant]
     Active Substance: OXYCODONE
  40. FOLIC ACID. [Concomitant]
     Active Substance: FOLIC ACID
  41. LIOTHYRONINE [Concomitant]
     Active Substance: LIOTHYRONINE
  42. PRALUENT [Concomitant]
     Active Substance: ALIROCUMAB
  43. VIAGRA [Concomitant]
     Active Substance: SILDENAFIL CITRATE
  44. EZETIMIBE. [Concomitant]
     Active Substance: EZETIMIBE
  45. FLUOXETINE [Concomitant]
     Active Substance: FLUOXETINE HYDROCHLORIDE
  46. FLUVIRINE [Concomitant]
  47. IMIPRAMINE [Concomitant]
     Active Substance: IMIPRAMINE
  48. LAMIVUDINE. [Concomitant]
     Active Substance: LAMIVUDINE
  49. LOSARTAN. [Concomitant]
     Active Substance: LOSARTAN
  50. QUETIAPINE. [Concomitant]
     Active Substance: QUETIAPINE
  51. REPATHA [Concomitant]
     Active Substance: EVOLOCUMAB
  52. TRAMADOL. [Concomitant]
     Active Substance: TRAMADOL

REACTIONS (22)
  - Musculoskeletal pain [Not Recovered/Not Resolved]
  - Anxiety [Not Recovered/Not Resolved]
  - Anhedonia [Not Recovered/Not Resolved]
  - Anaemia [Not Recovered/Not Resolved]
  - Blood urine present [Unknown]
  - Blood phosphorus increased [Unknown]
  - Fatigue [Not Recovered/Not Resolved]
  - Osteoarthritis [Unknown]
  - Malaise [Not Recovered/Not Resolved]
  - Gait disturbance [Not Recovered/Not Resolved]
  - Chronic kidney disease [Not Recovered/Not Resolved]
  - Rib fracture [Not Recovered/Not Resolved]
  - Pain [Not Recovered/Not Resolved]
  - General physical condition abnormal [Not Recovered/Not Resolved]
  - Osteopenia [Not Recovered/Not Resolved]
  - Emotional distress [Not Recovered/Not Resolved]
  - Hyperphosphataemia [Recovered/Resolved]
  - Glycosuria [Unknown]
  - Calculus urethral [Unknown]
  - Dysstasia [Not Recovered/Not Resolved]
  - Nephrolithiasis [Unknown]
  - Fanconi syndrome acquired [Recovered/Resolved]

NARRATIVE: CASE EVENT DATE: 200908
